FAERS Safety Report 10191028 (Version 3)
Quarter: 2014Q3

REPORT INFORMATION
  Report Type: Spontaneous
  Country: IT (occurrence: IT)
  Receive Date: 20140523
  Receipt Date: 20140715
  Transmission Date: 20150326
  Serious: Yes (Death, Hospitalization)
  Sender: FDA-Public Use
  Company Number: IT-ROCHE-1404710

PATIENT
  Age: 58 Year
  Sex: Male

DRUGS (2)
  1. AVASTIN [Suspect]
     Active Substance: BEVACIZUMAB
     Indication: DIABETIC RETINOPATHY
     Route: 050
     Dates: start: 2008, end: 2008
  2. VALPRESSION [Concomitant]
     Active Substance: VALSARTAN

REACTIONS (5)
  - Coma [Fatal]
  - Opportunistic infection [Fatal]
  - Speech disorder [Unknown]
  - Off label use [Fatal]
  - Hemiparesis [Unknown]

NARRATIVE: CASE EVENT DATE: 2008
